FAERS Safety Report 7230782-5 (Version None)
Quarter: 2011Q1

REPORT INFORMATION
  Report Type: 
  Country: None (occurrence: None)
  Receive Date: 20110118
  Receipt Date: 20101230
  Transmission Date: 20110831
  Serious: No
  Sender: FDA-Public Use
  Company Number: US-B.I. PHARMACEUTICALS,INC./RIDGEFIELD-2011-BP-00346BP

PATIENT
  Sex: Male

DRUGS (3)
  1. PRADAXA [Suspect]
     Indication: ATRIAL FIBRILLATION
     Dosage: 300 MG
     Route: 048
     Dates: start: 20101230
  2. ANDROGEL [Concomitant]
     Indication: BLOOD TESTOSTERONE DECREASED
  3. TYLENOL W/ CODEINE NO. 4 [Concomitant]
     Indication: PAIN

REACTIONS (1)
  - PAIN [None]
